FAERS Safety Report 10472374 (Version 1)
Quarter: 2014Q3

REPORT INFORMATION
  Report Type: Spontaneous
  Country: US (occurrence: None)
  Receive Date: 20140922
  Receipt Date: 20140922
  Transmission Date: 20150326
  Serious: Yes (Other)
  Sender: FDA-Public Use
  Company Number: US-H14001-14-00604

PATIENT
  Age: 53 Year
  Sex: Male

DRUGS (1)
  1. CEFAZOLIN (CEFAZOLIN) [Suspect]
     Active Substance: CEFAZOLIN
     Indication: STAPHYLOCOCCAL BACTERAEMIA
     Route: 042

REACTIONS (4)
  - Haemorrhage [None]
  - Prothrombin time prolonged [None]
  - Necrotising oesophagitis [None]
  - International normalised ratio increased [None]
